FAERS Safety Report 5481790-6 (Version None)
Quarter: 2007Q4

REPORT INFORMATION
  Report Type: 
  Country: None (occurrence: None)
  Receive Date: 20071004
  Receipt Date: 20070927
  Transmission Date: 20080405
  Serious: Yes (Other)
  Sender: FDA-Public Use
  Company Number: 2007SP015732

PATIENT
  Age: 45 Year
  Sex: Male
  Weight: 98.4306 kg

DRUGS (7)
  1. PEG-INTRON [Suspect]
     Indication: HEPATITIS C
     Dosage: SC
     Route: 058
     Dates: start: 20070420
  2. RIBAVIRIN [Suspect]
     Indication: HEPATITIS C
     Dosage: PO
     Route: 048
     Dates: start: 20070420
  3. CELEXA [Concomitant]
  4. INSULIN [Concomitant]
  5. BACTRIM [Concomitant]
  6. TRUVADA [Concomitant]
  7. LEXIVA [Concomitant]

REACTIONS (16)
  - ABNORMAL BEHAVIOUR [None]
  - AGGRESSION [None]
  - ALCOHOLISM [None]
  - ANGER [None]
  - DISORIENTATION [None]
  - DRUG ABUSER [None]
  - LOSS OF CONSCIOUSNESS [None]
  - MOOD SWINGS [None]
  - MYALGIA [None]
  - PAIN [None]
  - PARTNER STRESS [None]
  - PHARYNGEAL OEDEMA [None]
  - PHYSICAL ASSAULT [None]
  - RED BLOOD CELL COUNT DECREASED [None]
  - SOMNAMBULISM [None]
  - SWOLLEN TONGUE [None]
